FAERS Safety Report 7991783-2 (Version None)
Quarter: 2011Q4

REPORT INFORMATION
  Report Type: 
  Country: None (occurrence: None)
  Receive Date: 20111219
  Receipt Date: 20111206
  Transmission Date: 20120403
  Serious: Yes (Other)
  Sender: FDA-Public Use
  Company Number: PHFR2011GB007072

PATIENT
  Sex: Male

DRUGS (3)
  1. PHENOBARBITAL TAB [Concomitant]
     Dosage: 345 MG, TID
  2. TEGRETOL [Suspect]
     Indication: EPILEPSY
     Dosage: 800 MG, DAILY
     Route: 048
  3. AMLODIPINE [Concomitant]
     Dosage: 10 MG, DAILY

REACTIONS (3)
  - CEREBROVASCULAR ACCIDENT [None]
  - CONVULSION [None]
  - BLOOD SODIUM DECREASED [None]
